FAERS Safety Report 11235387 (Version 2)
Quarter: 2015Q3

REPORT INFORMATION
  Report Type: Spontaneous
  Country: US (occurrence: US)
  Receive Date: 20150702
  Receipt Date: 20150717
  Transmission Date: 20151125
  Serious: Yes (Death)
  Sender: FDA-Public Use
  Company Number: US-JNJFOC-20150623860

PATIENT
  Sex: Male

DRUGS (9)
  1. BENEFIBER [Concomitant]
     Active Substance: STARCH, WHEAT
  2. LASIX [Concomitant]
     Active Substance: FUROSEMIDE
  3. POTASSIUM [Concomitant]
     Active Substance: POTASSIUM
  4. CLONIDINE. [Concomitant]
     Active Substance: CLONIDINE
  5. MILK OF MAGNESIA [Concomitant]
     Active Substance: MAGNESIUM HYDROXIDE
  6. DIOVAN [Concomitant]
     Active Substance: VALSARTAN
  7. NITROSTAT [Concomitant]
     Active Substance: NITROGLYCERIN
  8. ATIVAN [Concomitant]
     Active Substance: LORAZEPAM
  9. IMBRUVICA [Suspect]
     Active Substance: IBRUTINIB
     Indication: CHRONIC LYMPHOCYTIC LEUKAEMIA
     Dosage: (THREE CAPSULES)
     Route: 048
     Dates: start: 20140816

REACTIONS (1)
  - Disease progression [Fatal]
